FAERS Safety Report 15681983 (Version 1)
Quarter: 2018Q4

REPORT INFORMATION
  Report Type: Spontaneous
  Country: GB (occurrence: GB)
  Receive Date: 20181203
  Receipt Date: 20181203
  Transmission Date: 20190205
  Serious: Yes (Hospitalization, Other)
  Sender: FDA-Public Use
  Company Number: GB-TEVA-2018-GB-980953

PATIENT
  Age: 69 Year
  Sex: Male
  Weight: 62 kg

DRUGS (7)
  1. VANCOMYCIN [Suspect]
     Active Substance: VANCOMYCIN
     Indication: BACTERIAL INFECTION
     Route: 042
     Dates: start: 20180831, end: 20180902
  2. CIPROFLOXACIN. [Suspect]
     Active Substance: CIPROFLOXACIN
     Indication: BACTERIAL INFECTION
     Route: 042
     Dates: start: 20180831, end: 20180902
  3. LEVOTHYROXINE SODIUM. [Concomitant]
     Active Substance: LEVOTHYROXINE SODIUM
  4. METRONIDAZOLE. [Suspect]
     Active Substance: METRONIDAZOLE
     Indication: BACTERIAL INFECTION
     Route: 042
     Dates: start: 20180831, end: 20180902
  5. LEVOFLOXACIN. [Suspect]
     Active Substance: LEVOFLOXACIN
     Indication: BACTERIAL INFECTION
     Route: 051
     Dates: start: 20180907, end: 20180913
  6. VERAPAMIL [Concomitant]
     Active Substance: VERAPAMIL HYDROCHLORIDE
  7. CANDESARTAN. [Concomitant]
     Active Substance: CANDESARTAN

REACTIONS (8)
  - Fatigue [Not Recovered/Not Resolved]
  - Condition aggravated [Unknown]
  - Documented hypersensitivity to administered product [Unknown]
  - Hypertension [Not Recovered/Not Resolved]
  - Hallucination [Not Recovered/Not Resolved]
  - Vitreous floaters [Not Recovered/Not Resolved]
  - Palpitations [Not Recovered/Not Resolved]
  - Insomnia [Not Recovered/Not Resolved]

NARRATIVE: CASE EVENT DATE: 20180901
